FAERS Safety Report 6767052-5 (Version None)
Quarter: 2010Q2

REPORT INFORMATION
  Report Type: 
  Country: None (occurrence: None)
  Receive Date: 20100611
  Receipt Date: 20100524
  Transmission Date: 20101027
  Serious: Yes (Life-Threatening, Hospitalization, Other)
  Sender: FDA-Public Use
  Company Number: IT-BRISTOL-MYERS SQUIBB COMPANY-15142045

PATIENT
  Age: 74 Year
  Sex: Male

DRUGS (7)
  1. GLUCOPHAGE [Suspect]
     Indication: TYPE 2 DIABETES MELLITUS
     Route: 048
     Dates: start: 20030101, end: 20100520
  2. REPAGLINIDE [Suspect]
     Indication: TYPE 2 DIABETES MELLITUS
     Dosage: 1DF=3U.1000MG
     Route: 048
     Dates: start: 20030101, end: 20100520
  3. TAMSULOSIN HCL [Concomitant]
     Route: 048
  4. RAMIPRIL [Concomitant]
     Route: 048
  5. OLPRESS [Concomitant]
     Route: 048
  6. LOBIVON [Concomitant]
     Route: 048
  7. LASIX [Concomitant]
     Route: 048

REACTIONS (6)
  - DIARRHOEA [None]
  - HYPOGLYCAEMIA [None]
  - LACTIC ACIDOSIS [None]
  - RENAL FAILURE [None]
  - TACHYPNOEA [None]
  - VOMITING [None]
